FAERS Safety Report 17535843 (Version 1)
Quarter: 2020Q1

REPORT INFORMATION
  Report Type: Spontaneous
  Country: US (occurrence: US)
  Receive Date: 20200313
  Receipt Date: 20200313
  Transmission Date: 20200409
  Serious: No
  Sender: FDA-Public Use
  Company Number: US-BIOGEN-2020BI00848609

PATIENT
  Sex: Female

DRUGS (2)
  1. TECFIDERA [Suspect]
     Active Substance: DIMETHYL FUMARATE
     Indication: MULTIPLE SCLEROSIS
     Route: 065
     Dates: end: 20200302
  2. TECFIDERA [Suspect]
     Active Substance: DIMETHYL FUMARATE
     Route: 065

REACTIONS (7)
  - Pain [Not Recovered/Not Resolved]
  - Eye pain [Recovered/Resolved]
  - Feeling of body temperature change [Unknown]
  - Cognitive disorder [Not Recovered/Not Resolved]
  - Hyperhidrosis [Unknown]
  - Eye disorder [Not Recovered/Not Resolved]
  - Muscle spasms [Not Recovered/Not Resolved]
